FAERS Safety Report 25721391 (Version 5)
Quarter: 2025Q4

REPORT INFORMATION
  Report Type: Spontaneous
  Country: US (occurrence: US)
  Receive Date: 20250825
  Receipt Date: 20251108
  Transmission Date: 20260117
  Serious: Yes (Other)
  Sender: ROCHE
  Company Number: US-ROCHE-10000362260

PATIENT
  Sex: Female

DRUGS (3)
  1. VABYSMO [Suspect]
     Active Substance: FARICIMAB-SVOA
     Indication: Macular degeneration
     Dosage: INJECTION IN RIGHT AND LEFT EYE
     Route: 050
  2. VABYSMO [Suspect]
     Active Substance: FARICIMAB-SVOA
     Indication: Neovascular age-related macular degeneration
  3. VABYSMO [Suspect]
     Active Substance: FARICIMAB-SVOA
     Indication: Dry age-related macular degeneration

REACTIONS (6)
  - Visual impairment [Unknown]
  - Off label use [Unknown]
  - Eye disorder [Unknown]
  - Reading disorder [Not Recovered/Not Resolved]
  - Blindness unilateral [Unknown]
  - Macular degeneration [Unknown]
